FAERS Safety Report 17402508 (Version 1)
Quarter: 2020Q1

REPORT INFORMATION
  Report Type: Spontaneous
  Country: NL (occurrence: NL)
  Receive Date: 20200211
  Receipt Date: 20200211
  Transmission Date: 20200409
  Serious: Yes (Other)
  Sender: FDA-Public Use
  Company Number: NL-TEVA-2020-NL-1182967

PATIENT
  Age: 15 Year
  Sex: Female

DRUGS (13)
  1. TIGECYCLINE. [Suspect]
     Active Substance: TIGECYCLINE
     Indication: MASTOIDITIS
     Dosage: 5 MG/ ML; THREE DROPS THREE TIMES DAILY
     Route: 061
  2. SODIUM CHLORIDE. [Concomitant]
     Active Substance: SODIUM CHLORIDE
     Indication: MEDICATION DILUTION
     Route: 042
  3. CLOFAZIMINE [Concomitant]
     Active Substance: CLOFAZIMINE
     Indication: MYCOBACTERIUM ABSCESSUS INFECTION
     Dosage: 50MG ONCE DAILY; IF WEIGHT IS }40 KG, THEN 100 MG ONCE DAILY
     Route: 048
  4. CLOFAZIMINE [Concomitant]
     Active Substance: CLOFAZIMINE
     Indication: MASTOIDITIS
  5. DEXAMETHASONE. [Suspect]
     Active Substance: DEXAMETHASONE
     Indication: VOMITING
  6. IMIPENEM-CILASTATIN [Suspect]
     Active Substance: CILASTATIN SODIUM\IMIPENEM
     Indication: MASTOIDITIS
     Dosage: 5/5 MG/ML; THREE DROPS THREE TIMES DAILY
     Route: 061
  7. AZITHROMYCIN ANHYDROUS. [Concomitant]
     Active Substance: AZITHROMYCIN ANHYDROUS
     Indication: MASTOIDITIS
  8. IMIPENEM-CILASTATIN [Suspect]
     Active Substance: CILASTATIN SODIUM\IMIPENEM
     Indication: MYCOBACTERIUM ABSCESSUS INFECTION
     Dosage: IMIPENEM/CILASTATIN 60/60 MG/KG/DAY IN 2 TO 4 DOSES
     Route: 042
  9. AZITHROMYCIN ANHYDROUS. [Concomitant]
     Active Substance: AZITHROMYCIN ANHYDROUS
     Indication: MYCOBACTERIUM ABSCESSUS INFECTION
     Route: 048
  10. TIGECYCLINE. [Suspect]
     Active Substance: TIGECYCLINE
     Indication: MYCOBACTERIUM ABSCESSUS INFECTION
     Dosage: 2.4 MG/KG DAILY; 2.4 MG/KG/DAY IN 2 DOSES
     Route: 042
  11. GRANISETRON [Concomitant]
     Active Substance: GRANISETRON
     Indication: NAUSEA
     Route: 065
  12. DEXAMETHASONE. [Suspect]
     Active Substance: DEXAMETHASONE
     Indication: NAUSEA
     Route: 065
  13. GRANISETRON [Concomitant]
     Active Substance: GRANISETRON
     Indication: VOMITING

REACTIONS (4)
  - Nausea [Recovering/Resolving]
  - Weight increased [Unknown]
  - Vomiting [Recovering/Resolving]
  - Skin striae [Unknown]
